FAERS Safety Report 9699863 (Version 1)
Quarter: 2013Q4

REPORT INFORMATION
  Report Type: Report from Study
  Country: AE (occurrence: US)
  Receive Date: 20131121
  Receipt Date: 20131121
  Transmission Date: 20140711
  Serious: No
  Sender: FDA-Public Use
  Company Number: US-B.I. PHARMACEUTICALS,INC./RIDGEFIELD-2013-BI-36919BI

PATIENT
  Age: 74 Year
  Sex: Male

DRUGS (22)
  1. GILOTRIF [Suspect]
     Indication: NON-SMALL CELL LUNG CANCER
     Dosage: 40 MG
     Route: 048
     Dates: start: 20131031
  2. OXYGEN 2.5 PER NC [Concomitant]
     Dosage: 2.5 PER NC
  3. LEXAPRO [Concomitant]
  4. METOPROLOL [Concomitant]
  5. AMLODIPINE [Concomitant]
  6. KEPPRA [Concomitant]
  7. ATIVAN [Concomitant]
     Dosage: Q 6 HRS
  8. FENTANYL PATCH [Concomitant]
     Dosage: 100 MG
  9. LORTAB [Concomitant]
     Indication: PAIN
  10. FLOMAX [Concomitant]
  11. NEXIUM [Concomitant]
  12. MEGACE [Concomitant]
     Indication: DECREASED APPETITE
  13. DOXYC RINSE [Concomitant]
     Indication: OROPHARYNGEAL PAIN
  14. HYDRON RINSE [Concomitant]
  15. NYSTATA RINSE [Concomitant]
     Indication: OROPHARYNGEAL PAIN
  16. LIDOC RINSE [Concomitant]
     Indication: OROPHARYNGEAL PAIN
  17. WARFARIN [Concomitant]
  18. DILANTIN [Concomitant]
  19. DECADRON [Concomitant]
  20. LIQUID MORPHINE [Concomitant]
     Indication: PAIN
  21. LIQUID MORPHINE [Concomitant]
     Indication: BRONCHIAL DISORDER
  22. MIRALAX [Concomitant]

REACTIONS (3)
  - Bleeding time prolonged [Unknown]
  - Diarrhoea [Recovered/Resolved]
  - Nausea [Not Recovered/Not Resolved]
